FAERS Safety Report 5674043-4 (Version None)
Quarter: 2008Q1

REPORT INFORMATION
  Report Type: 
  Country: None (occurrence: None)
  Receive Date: 20080320
  Receipt Date: 20080311
  Transmission Date: 20080703
  Serious: Yes (Death)
  Sender: FDA-Public Use
  Company Number: US-WYE-H03044608

PATIENT
  Sex: Female
  Weight: 90.8 kg

DRUGS (7)
  1. EFFEXOR XR [Suspect]
     Indication: DEPRESSION
     Route: 048
     Dates: start: 20010101
  2. EFFEXOR XR [Suspect]
     Indication: ANXIETY
     Route: 048
     Dates: end: 20071127
  3. METHADON HCL TAB [Suspect]
     Dosage: UNKNOWN
  4. XANAX [Suspect]
     Dosage: UNKNOWN
  5. DIAZEPAM [Suspect]
     Dosage: UNKNOWN
  6. SEROQUEL [Suspect]
     Dosage: UNKNOWN
  7. TOPAMAX [Suspect]
     Dosage: UNKNOWN

REACTIONS (5)
  - ASPHYXIA [None]
  - DRUG TOXICITY [None]
  - FALL [None]
  - LOSS OF CONSCIOUSNESS [None]
  - OEDEMA [None]
